FAERS Safety Report 5407349-4 (Version None)
Quarter: 2007Q3

REPORT INFORMATION
  Report Type: 
  Country: None (occurrence: None)
  Receive Date: 20070802
  Receipt Date: 20070720
  Transmission Date: 20080115
  Serious: Yes (Death, Other)
  Sender: FDA-Public Use
  Company Number: 2007EU001652

PATIENT
  Age: 3 Year
  Weight: 18 kg

DRUGS (2)
  1. TACROLIMUS [Suspect]
     Indication: LIVER TRANSPLANT
     Dosage: 0.8 MG, BID; 1 MG, BID
  2. SIMULECT [Concomitant]

REACTIONS (5)
  - DRUG LEVEL INCREASED [None]
  - LUNG DISORDER [None]
  - RENAL IMPAIRMENT [None]
  - SEPSIS [None]
  - THROMBOCYTOPENIA [None]
